FAERS Safety Report 8076933-4 (Version None)
Quarter: 2012Q1

REPORT INFORMATION
  Report Type: 
  Country: None (occurrence: None)
  Receive Date: 20120127
  Receipt Date: 20120116
  Transmission Date: 20120608
  Serious: Yes (Hospitalization)
  Sender: FDA-Public Use
  Company Number: PHHY2012FR004704

PATIENT
  Age: 60 Year
  Sex: Male

DRUGS (4)
  1. ONBREZ [Suspect]
     Indication: CHRONIC OBSTRUCTIVE PULMONARY DISEASE
     Dosage: 150 UG, QD
     Dates: start: 20120101
  2. ONBREZ [Suspect]
     Indication: DYSPNOEA
  3. SYMBICORT [Concomitant]
  4. ALDACTONE [Concomitant]

REACTIONS (4)
  - CIRRHOSIS ALCOHOLIC [None]
  - HEPATITIS [None]
  - OEDEMA PERIPHERAL [None]
  - LEUKOCYTOSIS [None]
